FAERS Safety Report 23863977 (Version 1)
Quarter: 2024Q2

REPORT INFORMATION
  Report Type: Spontaneous
  Country: US (occurrence: None)
  Receive Date: 20240516
  Receipt Date: 20240516
  Transmission Date: 20240716
  Serious: Yes (Hospitalization)
  Sender: FDA-Public Use
  Company Number: None

PATIENT
  Sex: Female

DRUGS (2)
  1. PROLIA [Suspect]
     Active Substance: DENOSUMAB
     Indication: Senile osteoporosis
     Dosage: OTHER FREQUENCY : ONCE EVERY 6 MONTH;?
     Route: 058
     Dates: start: 202011
  2. ARIMIDEX [Concomitant]
     Active Substance: ANASTROZOLE

REACTIONS (2)
  - Breast conserving surgery [None]
  - Radiation interaction [None]
